FAERS Safety Report 21322722 (Version 1)
Quarter: 2022Q3

REPORT INFORMATION
  Report Type: Spontaneous
  Country: MT (occurrence: MT)
  Receive Date: 20220912
  Receipt Date: 20220912
  Transmission Date: 20221027
  Serious: Yes (Other)
  Sender: FDA-Public Use
  Company Number: MT-JUBILANT CADISTA PHARMACEUTICALS-2022JUB00251

PATIENT
  Age: 82 Year
  Sex: Female

DRUGS (1)
  1. OLANZAPINE [Suspect]
     Active Substance: OLANZAPINE
     Indication: Neuropsychiatric symptoms
     Dosage: 5 MG, 1X/DAY
     Route: 065

REACTIONS (3)
  - Delirium [Recovered/Resolved]
  - Hypothermia [Recovered/Resolved]
  - Oedema [Recovered/Resolved]
